FAERS Safety Report 7748897 (Version 4)
Quarter: 2012Q4

REPORT INFORMATION
  Report Type: 
  Country: JP (occurrence: JP)
  Receive Date: 20110105
  Receipt Date: 20120911
  Transmission Date: 20130627
  Serious: Yes (Hospitalization, Other)
  Sender: FDA-Public Use
  Company Number: PHHY2010JP06486

PATIENT
  Age: 53 Year
  Sex: Male

DRUGS (3)
  1. CLOZARIL [Suspect]
     Dosage: 200 mg daily
     Route: 048
     Dates: start: 20100108, end: 20100204
  2. LIMAS [Concomitant]
     Dosage: 800 mg, UNK
     Route: 048
     Dates: start: 200905
  3. VITAMEDIN [Concomitant]
     Dosage: 50 mg, UNK
     Dates: start: 200910

REACTIONS (9)
  - Drug-induced liver injury [Recovered/Resolved]
  - Aspartate aminotransferase increased [Recovered/Resolved]
  - Alanine aminotransferase increased [Recovered/Resolved]
  - Eosinophil count increased [Recovered/Resolved]
  - Malaise [Recovering/Resolving]
  - Leukopenia [Unknown]
  - C-reactive protein increased [Recovering/Resolving]
  - Pyrexia [Recovering/Resolving]
  - White blood cell count increased [Recovering/Resolving]
